FAERS Safety Report 8316483-0 (Version None)
Quarter: 2012Q2

REPORT INFORMATION
  Report Type: 
  Country: None (occurrence: None)
  Receive Date: 20120425
  Receipt Date: 20120425
  Transmission Date: 20120825
  Serious: No
  Sender: FDA-Public Use
  Company Number: None

PATIENT
  Sex: Female
  Weight: 87.408 kg

DRUGS (1)
  1. SOLU-MEDROL [Suspect]
     Indication: HYPERSENSITIVITY
     Dosage: 40MG Q 12 HOURS IV X 1 DOSE
     Dates: start: 20120412

REACTIONS (1)
  - DRUG HYPERSENSITIVITY [None]
